FAERS Safety Report 20135107 (Version 2)
Quarter: 2022Q1

REPORT INFORMATION
  Report Type: Report from Study
  Country: NL (occurrence: NL)
  Receive Date: 20211201
  Receipt Date: 20220127
  Transmission Date: 20220423
  Serious: Yes (Other)
  Sender: FDA-Public Use
  Company Number: NL-NOVARTISPH-NVSC2021NL268777

PATIENT
  Age: 33 Year
  Sex: Female

DRUGS (3)
  1. OCTREOTIDE ACETATE [Suspect]
     Active Substance: OCTREOTIDE ACETATE
     Indication: Paraganglion neoplasm
     Dosage: 1 DOSAGE FORM, QW
     Route: 065
  2. OCTREOTIDE ACETATE [Suspect]
     Active Substance: OCTREOTIDE ACETATE
  3. OCTREOTIDE ACETATE [Suspect]
     Active Substance: OCTREOTIDE ACETATE

REACTIONS (5)
  - Autism spectrum disorder [Unknown]
  - Suspected COVID-19 [Unknown]
  - Malaise [Unknown]
  - Product use in unapproved indication [Unknown]
  - COVID-19 [Unknown]

NARRATIVE: CASE EVENT DATE: 20211122
